FAERS Safety Report 13109795 (Version 1)
Quarter: 2017Q1

REPORT INFORMATION
  Report Type: Spontaneous
  Country: US (occurrence: US)
  Receive Date: 20170112
  Receipt Date: 20170112
  Transmission Date: 20170428
  Serious: Yes (Other)
  Sender: FDA-Public Use
  Company Number: US-ROCHE-1099849

PATIENT
  Sex: Male

DRUGS (3)
  1. ACTIVASE [Suspect]
     Active Substance: ALTEPLASE
     Indication: ACUTE MYOCARDIAL INFARCTION
     Route: 042
  2. ACTIVASE [Suspect]
     Active Substance: ALTEPLASE
     Dosage: 50 MG PER 50 CC
     Route: 065
  3. ACTIVASE [Suspect]
     Active Substance: ALTEPLASE
     Dosage: 75 MG PER 50 CC
     Route: 065

REACTIONS (1)
  - Accelerated idioventricular rhythm [Unknown]
